FAERS Safety Report 7756889-1 (Version None)
Quarter: 2011Q3

REPORT INFORMATION
  Report Type: 
  Country: None (occurrence: None)
  Receive Date: 20110916
  Receipt Date: 20110913
  Transmission Date: 20111222
  Serious: Yes (Hospitalization)
  Sender: FDA-Public Use
  Company Number: US-GLAXOSMITHKLINE-A0890323A

PATIENT
  Sex: Female
  Weight: 100 kg

DRUGS (17)
  1. XANAX [Concomitant]
  2. TRICOR [Concomitant]
  3. DIOVAN [Concomitant]
  4. CELEBREX [Concomitant]
  5. COREG [Concomitant]
  6. GLYBURIDE [Concomitant]
  7. PREDNISONE [Concomitant]
  8. DIOVAN [Concomitant]
  9. ZETIA [Concomitant]
  10. SIMVASTATIN [Concomitant]
  11. LANTUS [Concomitant]
  12. AVANDIA [Suspect]
     Indication: DIABETES MELLITUS
     Dosage: 4MG TWICE PER DAY
     Route: 048
     Dates: start: 20050101
  13. LIPITOR [Concomitant]
  14. DETROL [Concomitant]
  15. ACTOS [Concomitant]
  16. WARFARIN SODIUM [Concomitant]
  17. LASIX [Concomitant]

REACTIONS (3)
  - DEEP VEIN THROMBOSIS [None]
  - BASAL GANGLIA INFARCTION [None]
  - CORONARY ARTERY DISEASE [None]
